FAERS Safety Report 15829209 (Version 1)
Quarter: 2019Q1

REPORT INFORMATION
  Report Type: Spontaneous
  Country: US (occurrence: US)
  Receive Date: 20190115
  Receipt Date: 20190115
  Transmission Date: 20190417
  Serious: No
  Sender: FDA-Public Use
  Company Number: US-ALLERGAN-1855394US

PATIENT
  Sex: Female

DRUGS (3)
  1. UNSPECIFIED ARTIFICIAL TEARS [Concomitant]
     Dosage: UNK
     Route: 065
  2. OMEGA 3 [Concomitant]
     Active Substance: OMEGA-3 FATTY ACIDS
     Dosage: UNK
     Route: 065
  3. RESTASIS [Suspect]
     Active Substance: CYCLOSPORINE
     Indication: DRY EYE
     Dosage: UNKNOWN
     Route: 047

REACTIONS (1)
  - Eye irritation [Unknown]
